FAERS Safety Report 10766625 (Version 3)
Quarter: 2015Q3

REPORT INFORMATION
  Report Type: Spontaneous
  Country: DK (occurrence: DK)
  Receive Date: 20150205
  Receipt Date: 20150810
  Transmission Date: 20151125
  Serious: Yes (Death, Life-Threatening, Hospitalization)
  Sender: FDA-Public Use
  Company Number: DK-JNJFOC-20150115508

PATIENT
  Age: 80 Year
  Sex: Male

DRUGS (15)
  1. CLOPIDOGREL [Concomitant]
     Active Substance: CLOPIDOGREL BISULFATE
     Indication: THROMBOSIS PROPHYLAXIS
     Route: 065
     Dates: start: 20140918, end: 20141222
  2. MABTHERA [Suspect]
     Active Substance: RITUXIMAB
     Indication: DIFFUSE LARGE B-CELL LYMPHOMA
     Dosage: STARTED ON 13-DEC-2013, 03-JAN,24-JAN,14-FEB,07-MAR, 28-MAR,22-APR AND 13-MAY-2014
     Route: 042
     Dates: start: 20131213, end: 20140513
  3. MATRIFEN [Concomitant]
     Active Substance: FENTANYL
     Indication: PAIN
     Route: 065
     Dates: start: 20141102, end: 20141120
  4. DIURAL (FUROSEMIDE) [Concomitant]
     Active Substance: FUROSEMIDE
     Indication: DIURETIC THERAPY
     Dosage: 80 (UNITS UNSPECIFIED)
     Route: 065
     Dates: start: 20131220
  5. PREDNISOLON [Suspect]
     Active Substance: PREDNISOLONE
     Indication: DIFFUSE LARGE B-CELL LYMPHOMA
     Dosage: STARTED ON 13-DEC-2013, 03-JAN,24-JAN,14-FEB,07-MAR, 28-MAR,22-APR AND 13-MAY-2014
     Route: 048
     Dates: start: 20131213, end: 20140513
  6. ONCOVIN [Suspect]
     Active Substance: VINCRISTINE SULFATE
     Indication: DIFFUSE LARGE B-CELL LYMPHOMA
     Dosage: 2 DOSES THRICE A WEEK; STARTED ON 13-DEC-2013, 03-JAN,24-JAN,14-FEB,07-MAR, 28-MAR,22-APR AND 13-MAY
     Route: 042
     Dates: start: 20131213, end: 20140513
  7. MOVICOL [Concomitant]
     Active Substance: POLYETHYLENE GLYCOL 3350\POTASSIUM CHLORIDE\SODIUM BICARBONATE\SODIUM CHLORIDE
     Indication: CONSTIPATION
     Route: 065
     Dates: start: 20140323
  8. IMOCLONE [Concomitant]
     Active Substance: ZOPICLONE
     Indication: INSOMNIA
     Dosage: 7.5 (UNITS UNSPECIFIED)
     Route: 065
     Dates: start: 20131219, end: 20141222
  9. AMLODIPINE [Concomitant]
     Active Substance: AMLODIPINE BESYLATE
     Indication: HYPERTENSION
     Route: 065
     Dates: start: 20121113, end: 20141130
  10. KALEORID [Concomitant]
     Active Substance: POTASSIUM CHLORIDE
     Indication: MINERAL SUPPLEMENTATION
     Dosage: 1500 (UNITS UNSPECIFIED)
     Route: 065
     Dates: start: 20131220, end: 20141212
  11. TRADOLAN [Concomitant]
     Active Substance: TRAMADOL
     Indication: PAIN
     Route: 065
     Dates: start: 20141102, end: 20141118
  12. CALEYX [Suspect]
     Active Substance: DOXORUBICIN HYDROCHLORIDE
     Indication: DIFFUSE LARGE B-CELL LYMPHOMA
     Dosage: 70 DOSES THRICE A WEEK
     Route: 042
     Dates: start: 20140422, end: 20140513
  13. ADRIAMYCIN [Suspect]
     Active Substance: DOXORUBICIN HYDROCHLORIDE
     Indication: DIFFUSE LARGE B-CELL LYMPHOMA
     Dosage: INTIALLY 80 MG ON 13-DEC-2013 THEREAFTER 70 MG THRICE A WEEK
     Route: 042
     Dates: start: 20131213, end: 20140328
  14. SENDOXAN [Suspect]
     Active Substance: CYCLOPHOSPHAMIDE
     Indication: DIFFUSE LARGE B-CELL LYMPHOMA
     Dosage: STARTED- 13-DEC-2013, 03-JAN,24-JAN,14-FEB,07-MAR, 28-MAR,22-APR AND 13-MAY-2014 INFUSION-30-60 MIN
     Route: 042
     Dates: start: 20131213, end: 20140513
  15. PINEX [Concomitant]
     Active Substance: ACETAMINOPHEN
     Indication: PAIN
     Route: 065
     Dates: start: 20141102, end: 20150105

REACTIONS (3)
  - Pulmonary fibrosis [Fatal]
  - Dyspnoea [Unknown]
  - Herpes zoster [Unknown]

NARRATIVE: CASE EVENT DATE: 201411
